FAERS Safety Report 10260855 (Version 1)
Quarter: 2014Q2

REPORT INFORMATION
  Report Type: Spontaneous
  Country: AU (occurrence: None)
  Receive Date: 20140623
  Receipt Date: 20140623
  Transmission Date: 20141212
  Serious: Yes (Other)
  Sender: FDA-Public Use
  Company Number: 2014PRN00002

PATIENT
  Sex: 0

DRUGS (1)
  1. LEVETIRACETAM (LEVETIRACETAM) [Suspect]
     Indication: EPILEPSY

REACTIONS (3)
  - Convulsion [None]
  - Toxicity to various agents [None]
  - Anticonvulsant drug level above therapeutic [None]
